FAERS Safety Report 6811244-3 (Version None)
Quarter: 2010Q2

REPORT INFORMATION
  Report Type: 
  Country: None (occurrence: None)
  Receive Date: 20100629
  Receipt Date: 20100629
  Transmission Date: 20101027
  Serious: No
  Sender: FDA-Public Use
  Company Number: None

PATIENT
  Age: 64 Year
  Sex: Male
  Weight: 92.99 kg

DRUGS (2)
  1. CEFTRIAXONE [Suspect]
     Indication: DYSPNOEA
     Dosage: 1 GM ONCE IV
     Route: 042
     Dates: start: 20100421, end: 20100421
  2. CEFTRIAXONE [Suspect]
     Indication: INFECTION
     Dosage: 1 GM ONCE IV
     Route: 042
     Dates: start: 20100421, end: 20100421

REACTIONS (2)
  - PRURITUS GENERALISED [None]
  - RASH [None]
